FAERS Safety Report 16214673 (Version 1)
Quarter: 2019Q2

REPORT INFORMATION
  Report Type: Spontaneous
  Country: DE (occurrence: DE)
  Receive Date: 20190418
  Receipt Date: 20190418
  Transmission Date: 20190711
  Serious: Yes (Other)
  Sender: FDA-Public Use
  Company Number: PHHY2019DE086654

PATIENT
  Age: 53 Year
  Sex: Female
  Weight: 75 kg

DRUGS (1)
  1. ROSUVASTATIN+EZETIMIBE [Suspect]
     Active Substance: EZETIMIBE\ROSUVASTATIN
     Indication: PRODUCT USED FOR UNKNOWN INDICATION
     Dosage: UNK
     Route: 048

REACTIONS (4)
  - Blood pressure systolic increased [Recovered/Resolved]
  - Muscle spasms [Unknown]
  - Myalgia [Unknown]
  - Impaired work ability [Unknown]

NARRATIVE: CASE EVENT DATE: 201903
